FAERS Safety Report 16946091 (Version 1)
Quarter: 2019Q4

REPORT INFORMATION
  Report Type: Spontaneous
  Country: US (occurrence: US)
  Receive Date: 20191022
  Receipt Date: 20191022
  Transmission Date: 20200122
  Serious: No
  Sender: FDA-Public Use
  Company Number: US-PFIZER INC-2019130682

PATIENT
  Age: 39 Year
  Sex: Female
  Weight: 124.28 kg

DRUGS (1)
  1. RELPAX [Suspect]
     Active Substance: ELETRIPTAN HYDROBROMIDE
     Indication: MIGRAINE
     Dosage: 40 MG, UNK (TAKE ONE WITH ONSET OF MIGRAINE CAN REPEAT IN AN HOUR)

REACTIONS (1)
  - Drug ineffective [Unknown]
